FAERS Safety Report 23837562 (Version 2)
Quarter: 2025Q2

REPORT INFORMATION
  Report Type: Report from Study
  Country: CA (occurrence: CA)
  Receive Date: 20240509
  Receipt Date: 20250515
  Transmission Date: 20250717
  Serious: Yes (Other)
  Sender: SANDOZ
  Company Number: CA-002147023-NVSC2023CA107960

PATIENT
  Sex: Female

DRUGS (2)
  1. HYRIMOZ [Suspect]
     Active Substance: ADALIMUMAB-ADAZ
     Dosage: 40 MG, Q2W
     Route: 058
     Dates: start: 20220422
  2. HYRIMOZ [Suspect]
     Active Substance: ADALIMUMAB-ADAZ
     Indication: Psoriatic arthropathy
     Dosage: 40 MG, SC, BIW, BIWEEKLY
     Route: 058
     Dates: start: 20220422

REACTIONS (6)
  - Psoriatic arthropathy [Recovered/Resolved]
  - Bradykinesia [Unknown]
  - Limb discomfort [Unknown]
  - Arthropathy [Unknown]
  - Pain [Unknown]
  - General physical health deterioration [Unknown]
